FAERS Safety Report 6173880-X (Version None)
Quarter: 2009Q2

REPORT INFORMATION
  Report Type: 
  Country: None (occurrence: None)
  Receive Date: 20090430
  Receipt Date: 20090423
  Transmission Date: 20091009
  Serious: No
  Sender: FDA-Public Use
  Company Number: GB-PFIZER INC-2009168950

PATIENT

DRUGS (1)
  1. VIAGRA [Suspect]
     Dosage: 50 MG, AS NEEDED
     Route: 048

REACTIONS (2)
  - OPTIC ISCHAEMIC NEUROPATHY [None]
  - VISION BLURRED [None]
